FAERS Safety Report 23143466 (Version 1)
Quarter: 2023Q4

REPORT INFORMATION
  Report Type: Spontaneous
  Country: US (occurrence: US)
  Receive Date: 20231103
  Receipt Date: 20231103
  Transmission Date: 20240110
  Serious: No
  Sender: FDA-Public Use
  Company Number: US-ELI_LILLY_AND_COMPANY-US202310015664

PATIENT
  Sex: Female

DRUGS (2)
  1. TALTZ [Suspect]
     Active Substance: IXEKIZUMAB
     Indication: Product used for unknown indication
     Dosage: 160 MG, UNKNOWN (WEEK 0)
     Route: 058
  2. TALTZ [Suspect]
     Active Substance: IXEKIZUMAB
     Dosage: 80 MG, OTHER (EVERY 2-WEEK)
     Route: 058

REACTIONS (1)
  - Psoriasis [Unknown]
